FAERS Safety Report 5143796-6 (Version None)
Quarter: 2006Q4

REPORT INFORMATION
  Report Type: 
  Country: None (occurrence: None)
  Receive Date: 20061106
  Receipt Date: 20061024
  Transmission Date: 20070319
  Serious: Yes (Hospitalization)
  Sender: FDA-Public Use
  Company Number: PHHO2006JP17714

PATIENT
  Age: 82 Year
  Sex: Female

DRUGS (9)
  1. DIOVAN [Suspect]
     Indication: HYPERTENSION
     Dosage: 80 MG, QD
     Route: 048
     Dates: start: 20060701, end: 20060707
  2. BENET [Concomitant]
     Indication: OSTEOPOROSIS
  3. PROTECADIN [Concomitant]
     Indication: GASTRITIS
     Dates: start: 20020520, end: 20060707
  4. ALFAROL [Concomitant]
     Indication: OSTEOPOROSIS
     Dates: start: 20030731, end: 20060707
  5. WARFARIN SODIUM [Concomitant]
     Indication: ATRIAL FIBRILLATION
  6. DIGOSIN [Concomitant]
     Indication: ATRIAL FIBRILLATION
  7. EPADEL [Suspect]
     Indication: ARTERIOSCLEROSIS OBLITERANS
     Dates: start: 20030130, end: 20050410
  8. CALCIUM LACTATE [Concomitant]
     Indication: OSTEOPOROSIS
     Dates: start: 20030731, end: 20060707
  9. COREMINAL [Concomitant]
     Indication: GASTRITIS
     Dates: start: 20021018, end: 20060707

REACTIONS (3)
  - ATRIAL FIBRILLATION [None]
  - CARDIAC FAILURE CONGESTIVE [None]
  - CONSTIPATION [None]
